FAERS Safety Report 8070903-8 (Version None)
Quarter: 2012Q1

REPORT INFORMATION
  Report Type: 
  Country: None (occurrence: None)
  Receive Date: 20120125
  Receipt Date: 20120118
  Transmission Date: 20120608
  Serious: Yes (Death, Life-Threatening, Hospitalization)
  Sender: FDA-Public Use
  Company Number: PHHO2011US08570

PATIENT
  Sex: Male
  Weight: 85.9 kg

DRUGS (59)
  1. ENALAPRIL MALEATE [Suspect]
     Dosage: CODE NOT BROKEN
     Dates: start: 20110520
  2. POTASSIUM SUPPLEMENTS [Concomitant]
     Dosage: 20 MEQ, QD
     Route: 048
     Dates: start: 20110412
  3. ASPIRIN [Concomitant]
     Indication: PROPHYLAXIS
     Dosage: 81 MG, QD
     Route: 048
     Dates: start: 20020101
  4. METFORMIN HYDROCHLORIDE [Concomitant]
     Indication: TYPE 2 DIABETES MELLITUS
     Dosage: 2000 MG, QD
     Route: 048
     Dates: start: 20000101
  5. SPIRIVA [Concomitant]
     Indication: DYSPNOEA
     Dosage: 18 UG, PRN
     Dates: start: 20100401
  6. PROAIR HFA [Concomitant]
     Indication: DYSPNOEA
     Dosage: 3 DF, QHS
     Dates: start: 20100422
  7. MOBIC [Concomitant]
     Indication: BACK PAIN
     Dosage: 15 MG, QD
     Route: 048
     Dates: start: 20101221
  8. PLAVIX [Concomitant]
     Indication: CARDIAC FAILURE CHRONIC
     Dosage: 150 MG, QD
     Route: 048
     Dates: start: 20110513, end: 20110518
  9. GLUBORID [Concomitant]
     Indication: TYPE 2 DIABETES MELLITUS
     Dosage: 20 MG, BID
     Route: 048
     Dates: start: 20110513, end: 20110604
  10. BLINDED NO TREATMENT RECEIVED [Suspect]
     Indication: CARDIAC FAILURE CHRONIC
     Dosage: CODE NOT BROKEN
     Dates: start: 20110311
  11. ENALAPRIL MALEATE [Suspect]
     Dosage: NO TREATMENT
     Dates: start: 20110514, end: 20110519
  12. VALSARTAN [Suspect]
     Dosage: NO TREATMENT
     Dates: start: 20110514, end: 20110519
  13. AVELOX [Concomitant]
     Indication: UPPER RESPIRATORY TRACT INFECTION
     Dosage: 400 MG, QD
     Route: 048
     Dates: start: 20110316, end: 20110320
  14. POTASSIUM SUPPLEMENTS [Concomitant]
     Indication: HYPOKALAEMIA
     Dosage: 20 MEQ, BID
     Route: 048
     Dates: start: 20010101, end: 20110405
  15. LASIX [Concomitant]
     Indication: CARDIAC FAILURE CHRONIC
     Dosage: 120 MG, QD
     Route: 048
     Dates: start: 20010101, end: 20110409
  16. BACTRIM [Concomitant]
     Indication: CELLULITIS
     Dosage: 1 DF, BID
     Route: 048
     Dates: start: 20110510
  17. CEPHALEXIN [Concomitant]
     Indication: BRONCHITIS
     Dosage: 500 MG, TID
     Route: 048
     Dates: start: 20101221, end: 20101230
  18. ATROVENT [Concomitant]
     Indication: DYSPNOEA
     Dosage: 0.5 MG, UNK
     Dates: start: 20110530
  19. ONDANSETRON HCL [Concomitant]
     Indication: ISCHAEMIA
     Dosage: 4 MG, PRN
     Route: 042
     Dates: start: 20110513
  20. HYDRALAZINE HCL [Concomitant]
     Indication: ISCHAEMIA
     Dosage: 10 MG, UNK
     Route: 042
     Dates: start: 20110517, end: 20110517
  21. VALSARTAN [Suspect]
     Indication: CARDIAC FAILURE CHRONIC
     Dosage: CODE NOT BROKEN
     Dates: start: 20110311
  22. BUMEX [Concomitant]
     Dosage: 4 MG, QD
     Route: 048
     Dates: start: 20110510
  23. ACTOS [Concomitant]
     Indication: TYPE 2 DIABETES MELLITUS
     Dosage: 30 MG, QD
     Route: 048
     Dates: start: 20100511, end: 20110404
  24. RESTORIL [Concomitant]
     Indication: DEPRESSION
     Dosage: 15 MG, QHS
     Route: 048
     Dates: start: 20110514
  25. NOVOLOG [Concomitant]
  26. SPIRONOLACTONE [Suspect]
     Indication: CARDIAC FAILURE CHRONIC
     Dosage: 25 MG, BID
     Route: 048
     Dates: start: 20110412
  27. ATENOLOL [Concomitant]
     Indication: ATRIAL FIBRILLATION
     Dosage: 100 MG, QD
     Route: 048
     Dates: start: 20040101
  28. LEXAPRO [Concomitant]
     Indication: DEPRESSION
     Dosage: 10 MG, QD
     Route: 048
     Dates: start: 20101221
  29. NORVASC [Concomitant]
     Indication: HYPERTENSION
     Dosage: 10 MG, QD
     Route: 048
     Dates: start: 20110513
  30. VALIUM [Concomitant]
     Indication: ISCHAEMIA
     Dosage: 10 MG, UNK
     Route: 048
     Dates: start: 20110513, end: 20110513
  31. ENALAPRIL MALEATE [Concomitant]
     Indication: CARDIAC FAILURE CHRONIC
     Dosage: 40 MG, BID
     Route: 048
     Dates: start: 20110518
  32. FENTANYL [Concomitant]
     Indication: ISCHAEMIA
     Dosage: 50 MG, PRN
     Route: 042
     Dates: start: 20110517, end: 20110517
  33. BLINDED NO TREATMENT RECEIVED [Suspect]
     Dosage: CODE NOT BROKEN
     Dates: start: 20110520
  34. WARFARIN SODIUM [Suspect]
     Indication: CARDIAC FAILURE CHRONIC
     Dosage: 5 MG, QD
     Route: 048
     Dates: start: 20101221
  35. LASIX [Concomitant]
     Dosage: 160 MG, QD
     Route: 048
     Dates: start: 20110410, end: 20110415
  36. GABAPENTIN [Concomitant]
     Indication: DIABETIC NEUROPATHY
     Dosage: 300 MG, QHS
     Route: 048
     Dates: start: 20110422, end: 20110505
  37. CELEVAC [Concomitant]
     Indication: DEPRESSION
     Dosage: 20 MG, QD
     Route: 048
     Dates: start: 20110528, end: 20110528
  38. KEFLEX [Concomitant]
     Indication: ISCHAEMIA
     Dosage: 500 MG, UNK
     Route: 048
     Dates: start: 20110513, end: 20110513
  39. HYDROCHLOROTHIAZIDE [Concomitant]
  40. GABAPENTIN [Concomitant]
     Dosage: 300 MG, BID
     Route: 048
     Dates: start: 20110506
  41. ROCEPHIN [Concomitant]
     Indication: CELLULITIS
     Dosage: 1000 MG, X 1
     Route: 030
     Dates: start: 20110510
  42. DIGOXIN [Concomitant]
     Indication: CARDIAC FAILURE CHRONIC
     Dosage: 0.25 MG, QD
     Route: 048
     Dates: start: 20020101
  43. SAXAGLIPTIN [Concomitant]
     Indication: TYPE 2 DIABETES MELLITUS
     Dosage: 5 MG, QD
     Route: 048
     Dates: start: 20101028
  44. PNEUMOCOCCAL VACCINE [Concomitant]
     Indication: PNEUMONIA
     Dosage: 0.5 ML, UNK
     Route: 030
     Dates: start: 20110513, end: 20110513
  45. CARDIZEM [Concomitant]
     Indication: ATRIAL FIBRILLATION
     Dosage: 20 MG, UNK
     Route: 042
     Dates: start: 20110528, end: 20110528
  46. AMLODIPINE [Concomitant]
  47. HYDRAZINE [Concomitant]
     Indication: ISCHAEMIA
     Dosage: 10 MG, QD
     Route: 042
     Dates: start: 20110517, end: 20110517
  48. WARFARIN SODIUM [Suspect]
     Dosage: 7.5 MG, QD
     Route: 048
     Dates: start: 20101221
  49. LISINOPRIL [Concomitant]
     Indication: HYPERTENSION
     Dosage: 40 MG, QD
     Route: 048
     Dates: start: 20000101, end: 20110113
  50. LANTUS [Concomitant]
     Indication: TYPE 2 DIABETES MELLITUS
     Dosage: 40 U, QHS
     Route: 058
     Dates: start: 20081215
  51. ASPIRIN [Concomitant]
  52. ENALAPRIL MALEATE [Suspect]
     Indication: CARDIAC FAILURE CHRONIC
     Dosage: CODE NOT BROKEN
     Dates: start: 20110311
  53. BLINDED NO TREATMENT RECEIVED [Suspect]
     Dosage: NO TREATMENT
     Dates: start: 20110514, end: 20110519
  54. VALSARTAN [Suspect]
     Dosage: CODE NOT BROKEN
     Dates: start: 20110520
  55. GLYBURIDE [Concomitant]
     Indication: TYPE 2 DIABETES MELLITUS
     Dosage: 10 MG, BID
     Route: 048
     Dates: start: 20110410
  56. BUMEX [Concomitant]
     Indication: CARDIAC FAILURE CHRONIC
     Dosage: 4 MG, BID
     Route: 048
     Dates: start: 20110415, end: 20110509
  57. CALCIUM [Concomitant]
     Indication: MEDICAL DIET
     Dosage: 1000 MG, QD
     Route: 048
     Dates: start: 19900101
  58. LORTAB [Concomitant]
     Indication: ISCHAEMIA
     Dosage: 1500 MG, PRN
     Route: 048
     Dates: start: 20110513
  59. ZOCOR [Concomitant]
     Indication: HYPERLIPIDAEMIA
     Dosage: 20 MG, QHS
     Route: 048
     Dates: start: 20110604

REACTIONS (5)
  - ACUTE MYOCARDIAL INFARCTION [None]
  - CONCOMITANT DISEASE PROGRESSION [None]
  - CARDIO-RESPIRATORY ARREST [None]
  - GASTROINTESTINAL HAEMORRHAGE [None]
  - RENAL FAILURE [None]
